FAERS Safety Report 17726050 (Version 1)
Quarter: 2020Q2

REPORT INFORMATION
  Report Type: Spontaneous
  Country: US (occurrence: US)
  Receive Date: 20200429
  Receipt Date: 20200429
  Transmission Date: 20200714
  Serious: Yes (Hospitalization, Other)
  Sender: FDA-Public Use
  Company Number: US-PURDUE-USA-2020-0152170

PATIENT
  Age: 48 Year
  Sex: Male

DRUGS (1)
  1. OXYCODONE HCL TABLETS (RHODES 91-490) [Suspect]
     Active Substance: OXYCODONE HYDROCHLORIDE
     Indication: SPINAL DISORDER
     Dosage: 15 MG, QID
     Route: 048
     Dates: start: 2002

REACTIONS (11)
  - Lung disorder [Unknown]
  - Weight decreased [Unknown]
  - Dyspnoea [Unknown]
  - Near death experience [Unknown]
  - Sepsis [Unknown]
  - Constipation [Unknown]
  - Heart rate increased [Unknown]
  - Large intestine perforation [Unknown]
  - Loss of consciousness [Unknown]
  - Cardiac disorder [Unknown]
  - Malaise [Unknown]

NARRATIVE: CASE EVENT DATE: 20200102
